FAERS Safety Report 7610582-4 (Version None)
Quarter: 2011Q3

REPORT INFORMATION
  Report Type: 
  Country: None (occurrence: None)
  Receive Date: 20110707
  Receipt Date: 20110622
  Transmission Date: 20111222
  Serious: Yes (Hospitalization)
  Sender: FDA-Public Use
  Company Number: 2011P1007331

PATIENT
  Age: 80 Year
  Sex: Male

DRUGS (1)
  1. GLYBURIDE [Suspect]

REACTIONS (4)
  - MALAISE [None]
  - PRODUCT QUALITY ISSUE [None]
  - PRODUCT LABEL ON WRONG PRODUCT [None]
  - WRONG DRUG ADMINISTERED [None]
